FAERS Safety Report 8565326-9 (Version None)
Quarter: 2012Q3

REPORT INFORMATION
  Report Type: 
  Country: None (occurrence: None)
  Receive Date: 20120803
  Receipt Date: 20120730
  Transmission Date: 20120928
  Serious: Yes (Hospitalization)
  Sender: FDA-Public Use
  Company Number: US-CELGENEUS-163-21880-12073174

PATIENT
  Sex: Male

DRUGS (6)
  1. DEXAMETHASONE [Concomitant]
     Dosage: .5714 MILLIGRAM
     Route: 048
  2. IBUPROFEN [Concomitant]
     Dosage: 200 MILLIGRAM
     Route: 048
  3. PRILOSEC [Concomitant]
     Dosage: 20 MILLIGRAM
     Route: 048
  4. REVLIMID [Suspect]
     Indication: MULTIPLE MYELOMA
     Dosage: 25 MILLIGRAM
     Route: 048
     Dates: start: 20110901
  5. HYDROCODONE BITARTRATE + ACETAMINOPHEN [Concomitant]
     Route: 065
     Dates: start: 20120705
  6. ASPIRIN [Concomitant]
     Dosage: 81 MILLIGRAM
     Route: 048

REACTIONS (2)
  - DYSPEPSIA [None]
  - PERICARDITIS [None]
